FAERS Safety Report 17207879 (Version 1)
Quarter: 2019Q4

REPORT INFORMATION
  Report Type: Spontaneous
  Country: CH (occurrence: CH)
  Receive Date: 20191227
  Receipt Date: 20191227
  Transmission Date: 20200122
  Serious: Yes (Hospitalization)
  Sender: FDA-Public Use
  Company Number: CH-JNJFOC-20191234944

PATIENT
  Age: 85 Year
  Sex: Male

DRUGS (7)
  1. INSPRA [Concomitant]
     Active Substance: EPLERENONE
     Dosage: 50 MG
  2. CONCOR [Concomitant]
     Active Substance: BISOPROLOL FUMARATE
     Dosage: 1 DF, UNK
     Route: 048
  3. TRIATEC [Concomitant]
     Dosage: 5 MG, QD
  4. TORASEMIDE [Concomitant]
     Active Substance: TORSEMIDE
     Dosage: 10 MG
  5. JANUMET [Concomitant]
     Active Substance: METFORMIN HYDROCHLORIDE\SITAGLIPTIN PHOSPHATE
     Dosage: 1000 MG
  6. DIGOXIN. [Concomitant]
     Active Substance: DIGOXIN
     Dosage: .25 MG, UNK
     Route: 048
  7. RIVAROXABAN [Suspect]
     Active Substance: RIVAROXABAN
     Indication: PRODUCT USED FOR UNKNOWN INDICATION
     Dosage: 20 MG, UNK
     Route: 048
     Dates: start: 201910

REACTIONS (4)
  - Anaemia [Recovered/Resolved]
  - Melaena [Recovered/Resolved]
  - Asthenia [Recovered/Resolved]
  - Gastrointestinal haemorrhage [Recovered/Resolved]

NARRATIVE: CASE EVENT DATE: 20191005
